FAERS Safety Report 9788098 (Version 1)
Quarter: 2013Q4

REPORT INFORMATION
  Report Type: Spontaneous
  Country: US (occurrence: None)
  Receive Date: 20131227
  Receipt Date: 20131227
  Transmission Date: 20140711
  Serious: Yes (Hospitalization)
  Sender: FDA-Public Use
  Company Number: None

PATIENT
  Age: 70 Year
  Sex: Male
  Weight: 71 kg

DRUGS (14)
  1. INSULIN [Suspect]
     Indication: DIABETES MELLITUS
     Route: 042
  2. TEGRETOL XR [Suspect]
     Indication: CONVULSION
     Route: 048
  3. PROAIR [Concomitant]
  4. SYMBICORT [Concomitant]
  5. PLAVIX [Concomitant]
  6. CYMBALTA [Concomitant]
  7. FENOFIBRATE [Concomitant]
  8. LASIX [Concomitant]
  9. KEPPRA [Concomitant]
  10. CRESTOR [Concomitant]
  11. FLOMAX [Concomitant]
  12. KAYEXALATE [Concomitant]
  13. FINASTERIDE [Concomitant]
  14. COREG [Concomitant]

REACTIONS (6)
  - Loss of consciousness [None]
  - Road traffic accident [None]
  - Convulsion [None]
  - Anticonvulsant drug level decreased [None]
  - Hypoglycaemia [None]
  - Hyperglycaemia [None]
